FAERS Safety Report 4982866-X (Version None)
Quarter: 2006Q2

REPORT INFORMATION
  Report Type: 
  Country: None (occurrence: None)
  Receive Date: 20060420
  Receipt Date: 20060411
  Transmission Date: 20061013
  Serious: Yes (Other)
  Sender: FDA-Public Use
  Company Number: 2006-01427

PATIENT
  Sex: 0

DRUGS (1)
  1. FLUOXETINE [Suspect]
     Dosage: 20 MG, DAILY (MATERNAL DOSE), TRANSPLACENTAL
     Route: 064

REACTIONS (17)
  - AGITATION NEONATAL [None]
  - CHILLS [None]
  - COMA NEONATAL [None]
  - CRYING [None]
  - DRUG EXPOSURE DURING PREGNANCY [None]
  - DRUG TOXICITY [None]
  - DRUG WITHDRAWAL SYNDROME NEONATAL [None]
  - FEEDING DISORDER NEONATAL [None]
  - FEELING JITTERY [None]
  - HYPERREFLEXIA [None]
  - HYPERTONIA NEONATAL [None]
  - IRRITABILITY [None]
  - NEONATAL DISORDER [None]
  - RESPIRATORY DISORDER NEONATAL [None]
  - SEROTONIN SYNDROME [None]
  - SLEEP DISORDER [None]
  - TREMOR NEONATAL [None]
